FAERS Safety Report 8246346-0 (Version None)
Quarter: 2012Q1

REPORT INFORMATION
  Report Type: 
  Country: None (occurrence: None)
  Receive Date: 20120330
  Receipt Date: 20120323
  Transmission Date: 20120608
  Serious: Yes (Life-Threatening, Hospitalization)
  Sender: FDA-Public Use
  Company Number: US-BAYER-201018685NA

PATIENT
  Age: 19 Year
  Sex: Female
  Weight: 58.957 kg

DRUGS (6)
  1. YAZ [Suspect]
     Indication: HYPOMENORRHOEA
  2. YAZ [Suspect]
     Indication: PREMENSTRUAL SYNDROME
  3. IBUPROFEN [Concomitant]
     Dosage: UNK UNK, PRN
  4. YAZ [Suspect]
     Indication: CONTRACEPTION
     Dosage: UNK
     Route: 048
     Dates: start: 20090701, end: 20091201
  5. YAZ [Suspect]
  6. TYLENOL [Concomitant]
     Indication: PAIN
     Dosage: UNK UNK, PRN

REACTIONS (7)
  - CYANOSIS [None]
  - PULMONARY EMBOLISM [None]
  - MENTAL DISORDER [None]
  - PAIN IN EXTREMITY [None]
  - DEEP VEIN THROMBOSIS [None]
  - ANXIETY [None]
  - HAEMATOMA [None]
